FAERS Safety Report 19015097 (Version 1)
Quarter: 2021Q1

REPORT INFORMATION
  Report Type: Spontaneous
  Country: US (occurrence: US)
  Receive Date: 20210317
  Receipt Date: 20210317
  Transmission Date: 20210420
  Serious: Yes (Death, Other)
  Sender: FDA-Public Use
  Company Number: US-AMGEN-USASP2021040019

PATIENT

DRUGS (2)
  1. PLERIXAFOR [Concomitant]
     Active Substance: PLERIXAFOR
     Dosage: UNK
  2. FILGRASTIM [Suspect]
     Active Substance: FILGRASTIM
     Indication: HAEMATOPOIETIC STEM CELL MOBILISATION
     Route: 065

REACTIONS (3)
  - Death [Fatal]
  - Disease progression [Unknown]
  - Therapeutic product effect incomplete [Unknown]
